FAERS Safety Report 14220449 (Version 1)
Quarter: 2017Q4

REPORT INFORMATION
  Report Type: Spontaneous
  Country: US (occurrence: US)
  Receive Date: 20171124
  Receipt Date: 20171124
  Transmission Date: 20180321
  Serious: No
  Sender: FDA-Public Use
  Company Number: US-GLAXOSMITHKLINE-US2017177004

PATIENT
  Age: 40 Year
  Sex: Female

DRUGS (2)
  1. EXCEDRIN EXTRA STRENGTH [Suspect]
     Active Substance: ACETAMINOPHEN\ASPIRIN\CAFFEINE
     Indication: MIGRAINE PROPHYLAXIS
     Dosage: UNK (4 TABLETS)
  2. EXCEDRIN MIGRAINE [Suspect]
     Active Substance: ACETAMINOPHEN\ASPIRIN\CAFFEINE
     Indication: MIGRAINE PROPHYLAXIS
     Dosage: UNK (4 TABLETS)

REACTIONS (4)
  - Drug effective for unapproved indication [Unknown]
  - Overdose [Unknown]
  - Product use in unapproved indication [Unknown]
  - Underdose [Unknown]
